FAERS Safety Report 9186761 (Version 2)
Quarter: 2013Q2

REPORT INFORMATION
  Report Type: Spontaneous
  Country: US (occurrence: US)
  Receive Date: 20130325
  Receipt Date: 20130522
  Transmission Date: 20140414
  Serious: Yes (Other)
  Sender: FDA-Public Use
  Company Number: US-PFIZER INC-2013093065

PATIENT
  Age: 30 Year
  Sex: Female

DRUGS (4)
  1. CHANTIX [Suspect]
     Indication: SMOKING CESSATION THERAPY
     Dosage: 1 MG, UNK
     Dates: start: 20080123, end: 20080227
  2. CYMBALTA [Concomitant]
     Dosage: 60 MG, UNK
  3. RITALIN [Concomitant]
     Dosage: 10 MG, UNK
  4. ORTHO TRI-CYCLEN [Concomitant]
     Dosage: UNK

REACTIONS (1)
  - Suicidal ideation [Unknown]
